FAERS Safety Report 11596672 (Version 9)
Quarter: 2019Q3

REPORT INFORMATION
  Report Type: Report from Study
  Country: CN (occurrence: CN)
  Receive Date: 20151006
  Receipt Date: 20190927
  Transmission Date: 20191004
  Serious: Yes (Other)
  Sender: FDA-Public Use
  Company Number: PHHY2015CN103759

PATIENT
  Age: 33 Year
  Sex: Male
  Weight: 68 kg

DRUGS (65)
  1. SIMULECT [Suspect]
     Active Substance: BASILIXIMAB
     Indication: PROPHYLAXIS AGAINST TRANSPLANT REJECTION
     Dosage: 20 MG, QD
     Route: 042
     Dates: start: 20150805, end: 20150805
  2. METHYLPREDNISOLONE. [Suspect]
     Active Substance: METHYLPREDNISOLONE
     Indication: IMMUNOSUPPRESSANT DRUG THERAPY
     Dosage: 500 MG, QD
     Route: 065
     Dates: start: 20150731, end: 20150731
  3. METHYLPREDNISOLONE. [Suspect]
     Active Substance: METHYLPREDNISOLONE
     Dosage: 100 MG, QD
     Route: 065
     Dates: start: 20150801, end: 20150802
  4. PREDNISONE. [Suspect]
     Active Substance: PREDNISONE
     Indication: PROPHYLAXIS AGAINST TRANSPLANT REJECTION
     Dosage: 100 MG, QD
     Route: 065
     Dates: start: 20150804, end: 20150806
  5. ALPROSTADIL. [Concomitant]
     Active Substance: ALPROSTADIL
     Indication: RENAL DISORDER
     Dosage: 10 UG, QD
     Route: 042
     Dates: start: 20150731, end: 20150817
  6. CALCIUM GLUCONATE. [Concomitant]
     Active Substance: CALCIUM GLUCONATE
     Indication: MINERAL SUPPLEMENTATION
     Dosage: 1000 MG, BID
     Route: 042
     Dates: start: 20150731, end: 20150810
  7. DEXAMETHASONE SODIUM PHOSPHATE. [Concomitant]
     Active Substance: DEXAMETHASONE SODIUM PHOSPHATE
     Indication: PROPHYLAXIS
     Dosage: 10 MG, QD
     Route: 042
     Dates: start: 20150731, end: 20150731
  8. FUROSEMIDE. [Concomitant]
     Active Substance: FUROSEMIDE
     Dosage: 40 MG, BID
     Route: 042
     Dates: start: 20150801, end: 20150801
  9. METOPROLOL TARTRATE. [Concomitant]
     Active Substance: METOPROLOL TARTRATE
     Indication: BLOOD PRESSURE INCREASED
     Dosage: 12.5 MG, QD
     Route: 048
     Dates: start: 20150802, end: 20150802
  10. RECOMBINANT HUMAN ERYTHROPOIETIN [Concomitant]
     Active Substance: ERYTHROPOIETIN
     Indication: ANAEMIA
     Dosage: 10000 IU, BIW
     Route: 058
     Dates: start: 20150801, end: 20150817
  11. DIAMMONIUM GLYCYRRHIZINATE [Concomitant]
     Active Substance: HERBALS\DIAMMONIUM GLYCYRRHIZINATE
     Indication: PROPHYLAXIS
     Dosage: 150 MG, TID
     Route: 065
     Dates: start: 20150903
  12. BENZBROMARONE [Concomitant]
     Active Substance: BENZBROMARONE
     Indication: BLOOD DISORDER
     Dosage: 50 MG, QD
     Route: 065
     Dates: start: 20150910
  13. BENZBROMARONE [Concomitant]
     Active Substance: BENZBROMARONE
     Dosage: 250 MG, QD
     Route: 065
     Dates: start: 20150831
  14. ESSENTIALE FORTE [Concomitant]
     Indication: PROPHYLAXIS
     Dosage: 228 MG, TID
     Route: 048
     Dates: start: 20150910
  15. MYFORTIC [Suspect]
     Active Substance: MYCOPHENOLATE SODIUM
     Indication: RENAL TRANSPLANT
     Dosage: 1440 MG, QD
     Route: 048
     Dates: start: 20150801, end: 20150801
  16. PREDNISONE. [Suspect]
     Active Substance: PREDNISONE
     Dosage: 12 MG, QD
     Route: 065
     Dates: start: 20150831
  17. TACROLIMUS. [Suspect]
     Active Substance: TACROLIMUS
     Dosage: 5 MG, QD
     Route: 065
     Dates: start: 20150803
  18. TACROLIMUS. [Suspect]
     Active Substance: TACROLIMUS
     Dosage: 2 MG, Q12H
     Route: 065
     Dates: start: 20150831
  19. ALANYL GLUTAMINE [Concomitant]
     Active Substance: ALANYL GLUTAMINE
     Indication: NUTRITIONAL SUPPLEMENTATION
     Dosage: 50 ML, QD
     Route: 042
     Dates: start: 20150801, end: 20150803
  20. INSULIN [Concomitant]
     Active Substance: INSULIN NOS
     Indication: DIABETES MELLITUS MANAGEMENT
     Dosage: 45 IU, QD
     Route: 042
     Dates: start: 20150731, end: 20150802
  21. MICAFUNGIN SODIUM [Concomitant]
     Active Substance: MICAFUNGIN SODIUM
     Indication: FUNGAL INFECTION
     Dosage: 150 MG, QD
     Route: 042
     Dates: start: 20150731, end: 20150803
  22. POLYENE PHOSPHATIDYLCHOLINE [Concomitant]
     Active Substance: PHOSPHOLIPID
     Indication: PROPHYLAXIS
     Dosage: 2 DF, TID
     Route: 048
     Dates: start: 20150831
  23. PREDNISONE. [Suspect]
     Active Substance: PREDNISONE
     Dosage: 90 MG, QD
     Route: 065
     Dates: start: 20150806, end: 20150808
  24. PREDNISONE. [Suspect]
     Active Substance: PREDNISONE
     Dosage: 60 MG, QD
     Route: 065
     Dates: start: 20150812, end: 20150813
  25. PREDNISONE. [Suspect]
     Active Substance: PREDNISONE
     Dosage: 20 MG, QD
     Route: 065
     Dates: start: 20150818, end: 20150830
  26. MANNITOL. [Concomitant]
     Active Substance: MANNITOL
     Indication: DIURETIC THERAPY
     Dosage: 250 ML, QD
     Route: 042
     Dates: start: 20150731, end: 20150731
  27. BUDESONIDE. [Concomitant]
     Active Substance: BUDESONIDE
     Indication: PRODUCTIVE COUGH
     Dosage: 2 MG, BID
     Route: 055
     Dates: start: 20150731, end: 20150817
  28. FUROSEMIDE. [Concomitant]
     Active Substance: FUROSEMIDE
     Indication: DIURETIC THERAPY
     Dosage: 100 MG, QD
     Route: 042
     Dates: start: 20150731, end: 20150731
  29. HEPARIN SODIUM. [Concomitant]
     Active Substance: HEPARIN SODIUM
     Indication: ANTICOAGULANT THERAPY
     Dosage: 2 OT, (VIAL4) QD
     Route: 065
     Dates: start: 20150731, end: 20150731
  30. TROPISETRON HYDROCHLORIDE [Concomitant]
     Active Substance: TROPISETRON HYDROCHLORIDE
     Indication: VOMITING
     Dosage: 2 MG, UNK
     Route: 042
     Dates: start: 20150731, end: 20150803
  31. LEUCOGEN [Concomitant]
     Active Substance: LEUCOGEN
     Indication: WHITE BLOOD CELL COUNT DECREASED
     Dosage: 40 MG, TID
     Route: 065
     Dates: start: 20150915
  32. ESOMEPRAZOLE MAGNESIUM. [Concomitant]
     Active Substance: ESOMEPRAZOLE MAGNESIUM
     Indication: PROPHYLAXIS
     Dosage: 40 MG, QD
     Route: 065
     Dates: start: 20150814
  33. MECOBALAMIN [Concomitant]
     Active Substance: METHYLCOBALAMIN
     Indication: NERVOUS SYSTEM DISORDER
  34. PROMETHAZINE HYDROCHLORIDE. [Concomitant]
     Active Substance: PROMETHAZINE HYDROCHLORIDE
     Indication: HYPERSENSITIVITY
     Dosage: 25 MG, QD
     Route: 030
     Dates: start: 20150731, end: 20150731
  35. MYFORTIC [Suspect]
     Active Substance: MYCOPHENOLATE SODIUM
     Indication: IMMUNOSUPPRESSION
     Dosage: 1080 MG, QD
     Route: 048
     Dates: start: 20150802
  36. PREDNISONE. [Suspect]
     Active Substance: PREDNISONE
     Dosage: 80 MG, QD
     Route: 065
     Dates: start: 20150808, end: 20150810
  37. PREDNISONE. [Suspect]
     Active Substance: PREDNISONE
     Dosage: 50 MG, QD
     Route: 065
     Dates: start: 20150814, end: 20150816
  38. PREDNISONE. [Suspect]
     Active Substance: PREDNISONE
     Dosage: 30 MG, QD
     Route: 065
     Dates: start: 20150817, end: 20150817
  39. TACROLIMUS. [Suspect]
     Active Substance: TACROLIMUS
     Indication: PROPHYLAXIS AGAINST TRANSPLANT REJECTION
     Dosage: 4 MG, QD
     Route: 065
     Dates: start: 20150801, end: 20150802
  40. AMBROXOL HYDROCHLORIDE [Concomitant]
     Active Substance: AMBROXOL HYDROCHLORIDE
     Dosage: 30 MG, BID
     Route: 048
     Dates: start: 20150804, end: 20150817
  41. HAEMOCOAGULASE [Concomitant]
     Indication: HAEMOSTASIS
     Dosage: 1 IU, BID
     Route: 042
     Dates: start: 20150731, end: 20150803
  42. PANTOPRAZOLE SODIUM. [Concomitant]
     Active Substance: PANTOPRAZOLE SODIUM
     Indication: HYPERCHLORHYDRIA
     Dosage: 40 MG, BID
     Route: 042
     Dates: start: 20150731, end: 20150812
  43. HUMAN ALBUMIN [Concomitant]
     Active Substance: ALBUMIN HUMAN
     Indication: PRODUCT USED FOR UNKNOWN INDICATION
     Dosage: 50 ML, QD
     Route: 042
     Dates: start: 20150801, end: 20150810
  44. TACROLIMUS. [Suspect]
     Active Substance: TACROLIMUS
     Dosage: 1.5 MG, BID
     Route: 065
     Dates: start: 20150913
  45. CALCITRIOL. [Concomitant]
     Active Substance: CALCITRIOL
     Indication: MINERAL SUPPLEMENTATION
     Dosage: 0.25 UG, QD
     Route: 048
     Dates: start: 20150814
  46. FUROSEMIDE. [Concomitant]
     Active Substance: FUROSEMIDE
     Dosage: 40 MG, QD
     Route: 042
     Dates: start: 20150803, end: 20150803
  47. PROMETHAZINE HYDROCHLORIDE. [Concomitant]
     Active Substance: PROMETHAZINE HYDROCHLORIDE
     Dosage: 25 MG, QD
     Route: 030
     Dates: start: 20150805, end: 20150805
  48. ESOMEPRAZOLE MAGNESIUM. [Concomitant]
     Active Substance: ESOMEPRAZOLE MAGNESIUM
     Indication: HYPERCHLORHYDRIA
  49. AMBROXOL HYDROCHLORIDE [Concomitant]
     Active Substance: AMBROXOL HYDROCHLORIDE
     Indication: PRODUCTIVE COUGH
     Dosage: 90 MG, BID
     Route: 042
     Dates: start: 20150731, end: 20150804
  50. CALCITRIOL. [Concomitant]
     Active Substance: CALCITRIOL
     Dosage: 0.25 UG, QD
     Route: 048
     Dates: start: 20150801, end: 20150823
  51. CEFOPERAZONA/SULBACTAM [Concomitant]
     Active Substance: CEFOPERAZONE SODIUM\SULBACTAM SODIUM
     Dosage: 3000 MG, Q12H
     Route: 042
     Dates: start: 20150802, end: 20150810
  52. DIISOPROPYLAMINE DICHLOROACETATE [Concomitant]
     Indication: PROPHYLAXIS
     Dosage: 80 MG, BID
     Route: 042
     Dates: start: 20150731, end: 20150817
  53. FUROSEMIDE. [Concomitant]
     Active Substance: FUROSEMIDE
     Dosage: 20 MG, QD
     Route: 042
     Dates: start: 20150802, end: 20150810
  54. MECOBALAMIN [Concomitant]
     Active Substance: METHYLCOBALAMIN
     Indication: ANAEMIA
     Dosage: 500 MG, TID
     Route: 048
     Dates: start: 20150803
  55. TERBUTALINE SULFATE. [Concomitant]
     Active Substance: TERBUTALINE SULFATE
     Indication: PRODUCTIVE COUGH
     Dosage: 5 MG, BID
     Route: 055
     Dates: start: 20150731, end: 20150817
  56. SIMULECT [Suspect]
     Active Substance: BASILIXIMAB
     Indication: RENAL TRANSPLANT
     Dosage: 20 MG, QD
     Route: 042
     Dates: start: 20150731, end: 20150731
  57. METHYLPREDNISOLONE. [Suspect]
     Active Substance: METHYLPREDNISOLONE
     Dosage: 80 MG, QD
     Route: 065
     Dates: start: 20150802, end: 20150804
  58. MANNITOL. [Concomitant]
     Active Substance: MANNITOL
     Dosage: 125 ML, QD
     Route: 042
     Dates: start: 20150801, end: 20150802
  59. CEFOPERAZONA/SULBACTAM [Concomitant]
     Active Substance: CEFOPERAZONE SODIUM\SULBACTAM SODIUM
     Indication: PROPHYLAXIS
     Dosage: 3000 MG, Q12H
     Route: 042
     Dates: start: 20150731, end: 20150731
  60. CEFOPERAZONA/SULBACTAM [Concomitant]
     Active Substance: CEFOPERAZONE SODIUM\SULBACTAM SODIUM
     Dosage: 1500 MG, Q12H
     Route: 042
     Dates: start: 20150731, end: 20150802
  61. FUDOSTEINE [Concomitant]
     Active Substance: FUDOSTEINE
     Indication: PRODUCTIVE COUGH
     Dosage: 400 MG, TID
     Route: 048
     Dates: start: 20150801, end: 20150817
  62. IRON SUCROSE [Concomitant]
     Active Substance: IRON SUCROSE
     Indication: ANAEMIA
     Dosage: 200 MG, QD
     Route: 042
     Dates: start: 20150801, end: 20150806
  63. PANTOPRAZOLE SODIUM. [Concomitant]
     Active Substance: PANTOPRAZOLE SODIUM
     Indication: PROPHYLAXIS
  64. POTASSIUM CHLORIDE. [Concomitant]
     Active Substance: POTASSIUM CHLORIDE
     Indication: MINERAL SUPPLEMENTATION
     Dosage: 1000 MG, BID
     Route: 048
     Dates: start: 20140814, end: 20150817
  65. TELMISARTAN. [Concomitant]
     Active Substance: TELMISARTAN
     Indication: BLOOD PRESSURE INCREASED
     Dosage: 80 MG, QD
     Route: 048
     Dates: start: 20150810

REACTIONS (9)
  - Drug-induced liver injury [Not Recovered/Not Resolved]
  - Secondary hypothyroidism [Not Recovered/Not Resolved]
  - Chronic kidney disease-mineral and bone disorder [Not Recovered/Not Resolved]
  - Hypoaesthesia [Recovered/Resolved]
  - Lung infection [Recovered/Resolved]
  - Scrotal swelling [Unknown]
  - Hyperuricaemia [Not Recovered/Not Resolved]
  - Hydrocele [Recovered/Resolved with Sequelae]
  - Diarrhoea [Recovering/Resolving]

NARRATIVE: CASE EVENT DATE: 20150801
